FAERS Safety Report 25051126 (Version 1)
Quarter: 2025Q1

REPORT INFORMATION
  Report Type: Spontaneous
  Country: CA (occurrence: CA)
  Receive Date: 20250307
  Receipt Date: 20250307
  Transmission Date: 20250408
  Serious: Yes (Life-Threatening, Other)
  Sender: GRIFOLS
  Company Number: CA-IGSA-BIG0033471

PATIENT
  Age: 14 Year
  Sex: Male
  Weight: 41 kg

DRUGS (32)
  1. ALBUMIN (HUMAN) [Suspect]
     Active Substance: ALBUMIN HUMAN
     Indication: Product used for unknown indication
     Route: 042
  2. ACETAMINOPHEN [Suspect]
     Active Substance: ACETAMINOPHEN
  3. APROTININ\CALCIUM CHLORIDE\FIBRINOGEN HUMAN\THROMBIN [Suspect]
     Active Substance: APROTININ\CALCIUM CHLORIDE\FIBRINOGEN HUMAN\HUMAN THROMBIN
  4. BUDESONIDE [Suspect]
     Active Substance: BUDESONIDE
  5. CALCIUM CHLORIDE [Suspect]
     Active Substance: CALCIUM CHLORIDE
  6. CEFAZOLIN SODIUM [Suspect]
     Active Substance: CEFAZOLIN SODIUM
  7. CHLORHEXIDINE GLUCONATE [Suspect]
     Active Substance: CHLORHEXIDINE GLUCONATE
  8. CHLORHEXIDINE GLUCONATE\ISOPROPYL ALCOHOL [Suspect]
     Active Substance: CHLORHEXIDINE GLUCONATE\ISOPROPYL ALCOHOL
  9. ANTIHEMOPHILIC FACTOR HUMAN [Suspect]
     Active Substance: ANTIHEMOPHILIC FACTOR HUMAN
  10. DDAVP [Suspect]
     Active Substance: DESMOPRESSIN ACETATE
  11. DEXAMETHASONE ACETATE [Suspect]
     Active Substance: DEXAMETHASONE ACETATE
  12. DIPHENHYDRAMINE [Suspect]
     Active Substance: DIPHENHYDRAMINE
  13. FAMOTIDINE [Suspect]
     Active Substance: FAMOTIDINE
  14. GABAPENTIN [Suspect]
     Active Substance: GABAPENTIN
  15. DEVICE\GELATIN [Suspect]
     Active Substance: DEVICE\GELATIN
  16. HYDROCORTISONE SODIUM SUCCINATE [Suspect]
     Active Substance: HYDROCORTISONE SODIUM SUCCINATE
  17. HYDROMORPHONE [Suspect]
     Active Substance: HYDROMORPHONE
  18. KETAMINE HYDROCHLORIDE [Suspect]
     Active Substance: KETAMINE HYDROCHLORIDE
  19. MORPHINE [Suspect]
     Active Substance: MORPHINE
  20. NAPROSYN [Suspect]
     Active Substance: NAPROXEN
  21. NOREPINEPHRINE BITARTRATE [Suspect]
     Active Substance: NOREPINEPHRINE BITARTRATE
  22. ONDANSETRON [Suspect]
     Active Substance: ONDANSETRON
  23. PROPOFOL [Suspect]
     Active Substance: PROPOFOL
  24. ROCURONIUM [Suspect]
     Active Substance: ROCURONIUM BROMIDE
  25. SUFENTANIL CITRATE [Suspect]
     Active Substance: SUFENTANIL CITRATE
  26. TRANDATE [Suspect]
     Active Substance: LABETALOL HYDROCHLORIDE
  27. TRANEXAMIC ACID [Suspect]
     Active Substance: TRANEXAMIC ACID
  28. VANCOMYCIN HYDROCHLORIDE [Suspect]
     Active Substance: VANCOMYCIN HYDROCHLORIDE
  29. VON WILLEBRAND FACTOR HUMAN [Suspect]
     Active Substance: VON WILLEBRAND FACTOR HUMAN
  30. FIBRINOGEN [Suspect]
     Active Substance: FIBRINOGEN HUMAN
  31. VENTOLIN [Suspect]
     Active Substance: ALBUTEROL SULFATE
  32. SUFENTANIL [Suspect]
     Active Substance: SUFENTANIL

REACTIONS (22)
  - Adverse reaction [Recovered/Resolved]
  - Anaphylactic reaction [Recovered/Resolved]
  - Anaphylactic shock [Recovered/Resolved]
  - Angiopathy [Recovered/Resolved]
  - Back pain [Recovered/Resolved]
  - Blood pressure increased [Recovered/Resolved]
  - Emphysema [Recovered/Resolved]
  - Epistaxis [Recovered/Resolved]
  - Face oedema [Recovered/Resolved]
  - Flatulence [Recovered/Resolved]
  - Haemorrhage [Recovered/Resolved]
  - Haemothorax [Recovered/Resolved]
  - Hypersensitivity [Recovered/Resolved]
  - Hypotension [Recovered/Resolved]
  - Hypovolaemia [Recovered/Resolved]
  - Inspiratory capacity decreased [Recovered/Resolved]
  - Mechanical ventilation complication [Recovered/Resolved]
  - Pleural effusion [Recovered/Resolved]
  - Pneumothorax [Recovered/Resolved]
  - Shock haemorrhagic [Recovered/Resolved]
  - Tachycardia [Recovered/Resolved]
  - Urticaria [Recovered/Resolved]
